FAERS Safety Report 25286002 (Version 1)
Quarter: 2025Q2

REPORT INFORMATION
  Report Type: Spontaneous
  Country: US (occurrence: US)
  Receive Date: 20250509
  Receipt Date: 20250509
  Transmission Date: 20250716
  Serious: Yes (Other)
  Sender: AMGEN
  Company Number: US-AMGEN-USASP2025086653

PATIENT
  Age: 41 Year
  Sex: Male

DRUGS (1)
  1. ADALIMUMAB [Suspect]
     Active Substance: ADALIMUMAB
     Indication: Crohn^s disease
     Dosage: 40 MILLIGRAM/0.4ML, Q2WK
     Route: 065

REACTIONS (4)
  - Hodgkin^s disease [Unknown]
  - Haematochezia [Unknown]
  - Epstein-Barr virus associated lymphoma [Unknown]
  - Intestinal obstruction [Unknown]
